FAERS Safety Report 9787304 (Version 5)
Quarter: 2016Q1

REPORT INFORMATION
  Report Type: Report from Study
  Country: US (occurrence: US)
  Receive Date: 20131230
  Receipt Date: 20160208
  Transmission Date: 20160526
  Serious: Yes (Other)
  Sender: FDA-Public Use
  Company Number: US-ROCHE-1322317

PATIENT
  Sex: Male

DRUGS (5)
  1. EPIPEN [Concomitant]
     Active Substance: EPINEPHRINE
     Dosage: FREQUENCY 1, PER 0.3ML GIVE LATERAL THIGH SEVER AL
     Route: 065
  2. XOLAIR [Suspect]
     Active Substance: OMALIZUMAB
     Indication: GASTROENTERITIS EOSINOPHILIC
     Dosage: ON 20/FEB/2014, MOST RECENT DOSE OF SUBCUTANEOUS OMALIZUMAB 300 MG EVERY 4 WEEKS
     Route: 058
     Dates: start: 20090306
  3. XOLAIR [Suspect]
     Active Substance: OMALIZUMAB
     Indication: URTICARIA
     Route: 058
     Dates: start: 2005
  4. ACIDOPHILUS [Concomitant]
     Active Substance: LACTOBACILLUS ACIDOPHILUS
     Indication: ABDOMINAL PAIN
     Route: 048
  5. EPIPEN [Concomitant]
     Active Substance: EPINEPHRINE
     Indication: FOOD ALLERGY
     Dosage: 0.3MG/0.3ML INJECTION DEVICE IN LATERAL THIGH
     Route: 065

REACTIONS (20)
  - Diarrhoea [Unknown]
  - Nasal congestion [Unknown]
  - Infectious mononucleosis [Unknown]
  - Chest pain [Unknown]
  - Product use issue [Unknown]
  - Anhedonia [Unknown]
  - Vocal cord disorder [Unknown]
  - Insomnia [Unknown]
  - Nausea [Unknown]
  - Food intolerance [Unknown]
  - Xerosis [Unknown]
  - Depression [Unknown]
  - Conjunctivitis allergic [Unknown]
  - Rhinitis allergic [Unknown]
  - Nasal mucosal disorder [Unknown]
  - Dyspnoea [Unknown]
  - Sleep disorder [Unknown]
  - Gastrointestinal disorder [Unknown]
  - Headache [Unknown]
  - Fatigue [Unknown]
